FAERS Safety Report 12217748 (Version 1)
Quarter: 2016Q1

REPORT INFORMATION
  Report Type: Spontaneous
  Country: US (occurrence: US)
  Receive Date: 20160329
  Receipt Date: 20160329
  Transmission Date: 20160526
  Serious: Yes (Other)
  Sender: FDA-Public Use
  Company Number: US-SA-2016SA061466

PATIENT
  Age: 74 Year
  Sex: Male

DRUGS (1)
  1. PLAVIX [Suspect]
     Active Substance: CLOPIDOGREL BISULFATE
     Route: 065

REACTIONS (3)
  - Implantable defibrillator insertion [Unknown]
  - Gastrointestinal haemorrhage [Unknown]
  - Silent myocardial infarction [Unknown]

NARRATIVE: CASE EVENT DATE: 2015
